FAERS Safety Report 8026107-8 (Version None)
Quarter: 2012Q1

REPORT INFORMATION
  Report Type: 
  Country: None (occurrence: None)
  Receive Date: 20120105
  Receipt Date: 20110706
  Transmission Date: 20120608
  Serious: No
  Sender: FDA-Public Use
  Company Number: US-ABBOTT-11P-163-0837274-00

PATIENT
  Sex: Male
  Weight: 65.83 kg

DRUGS (4)
  1. SYNTHROID [Suspect]
     Indication: HYPOTHYROIDISM
     Route: 048
     Dates: start: 20050101, end: 20070101
  2. SYNTHROID [Suspect]
     Route: 048
     Dates: start: 20100401
  3. SYNTHROID [Suspect]
     Route: 048
     Dates: start: 20070101, end: 20100401
  4. SYNTHROID [Suspect]
     Route: 048

REACTIONS (6)
  - DECREASED APPETITE [None]
  - OVERDOSE [None]
  - ANXIETY [None]
  - WEIGHT DECREASED [None]
  - DRUG DISPENSING ERROR [None]
  - INSOMNIA [None]
